FAERS Safety Report 8336254-9 (Version None)
Quarter: 2012Q2

REPORT INFORMATION
  Report Type: 
  Country: None (occurrence: None)
  Receive Date: 20120504
  Receipt Date: 20120427
  Transmission Date: 20120825
  Serious: Yes (Hospitalization, Other)
  Sender: FDA-Public Use
  Company Number: US-UCBSA-056383

PATIENT
  Age: 41 Year
  Sex: Female
  Weight: 95.25 kg

DRUGS (4)
  1. NAPROXEN (ALEVE) [Concomitant]
     Indication: HEADACHE
     Dosage: PRN
     Route: 048
     Dates: start: 20060101
  2. VIMPAT [Suspect]
     Dosage: SEVERAL MONTHS
     Route: 048
  3. VIMPAT [Suspect]
     Indication: GRAND MAL CONVULSION
     Dosage: UNKNOWN DOSE
     Dates: start: 20111101
  4. TOPAMAX [Concomitant]
     Indication: CONVULSION
     Route: 048

REACTIONS (1)
  - GRAND MAL CONVULSION [None]
